FAERS Safety Report 12328423 (Version 1)
Quarter: 2016Q2

REPORT INFORMATION
  Report Type: Spontaneous
  Country: US (occurrence: US)
  Receive Date: 20160503
  Receipt Date: 20160503
  Transmission Date: 20160815
  Serious: No
  Sender: FDA-Public Use
  Company Number: US-BEH-2014045520

PATIENT
  Age: 75 Year
  Sex: Male
  Weight: 112 kg

DRUGS (20)
  1. DIPHENHYDRAMINE. [Concomitant]
     Active Substance: DIPHENHYDRAMINE
  2. WARFARIN [Concomitant]
     Active Substance: WARFARIN
  3. METAMUCIL [Concomitant]
     Active Substance: PLANTAGO SEED
  4. OXYGEN. [Concomitant]
     Active Substance: OXYGEN
  5. CITALOPRAM [Concomitant]
     Active Substance: CITALOPRAM HYDROBROMIDE
  6. SYMBICORT [Concomitant]
     Active Substance: BUDESONIDE\FORMOTEROL FUMARATE DIHYDRATE
  7. LIDOCAINE. [Concomitant]
     Active Substance: LIDOCAINE
     Dosage: 4%
  8. AMBIEN [Concomitant]
     Active Substance: ZOLPIDEM TARTRATE
  9. HIZENTRA [Suspect]
     Active Substance: HUMAN IMMUNOGLOBULIN G
     Indication: IMMUNODEFICIENCY COMMON VARIABLE
     Dosage: 4 GM 20 ML VIAL; 12 GM EVERY WEEK
     Route: 058
     Dates: start: 20140929, end: 20140929
  10. PRESER VISION [Concomitant]
  11. LIPITOR [Concomitant]
     Active Substance: ATORVASTATIN CALCIUM
  12. MIRALAX [Concomitant]
     Active Substance: POLYETHYLENE GLYCOL 3350
  13. PANTOPRAZOLE [Concomitant]
     Active Substance: PANTOPRAZOLE SODIUM
  14. VITAMIN C [Concomitant]
     Active Substance: ASCORBIC ACID
  15. SUDAFED [Concomitant]
     Active Substance: PSEUDOEPHEDRINE HYDROCHLORIDE
  16. EPIPEN [Concomitant]
     Active Substance: EPINEPHRINE
  17. TRAZODONE [Concomitant]
     Active Substance: TRAZODONE HYDROCHLORIDE
  18. ACETAMINOPHEN. [Concomitant]
     Active Substance: ACETAMINOPHEN
  19. CENTRUM COMPLETE MULTIVITAMIN [Concomitant]
  20. ZYRTEC [Concomitant]
     Active Substance: CETIRIZINE HYDROCHLORIDE

REACTIONS (1)
  - Headache [Recovered/Resolved]

NARRATIVE: CASE EVENT DATE: 20141001
